FAERS Safety Report 9358507 (Version 1)
Quarter: 2013Q2

REPORT INFORMATION
  Report Type: Spontaneous
  Country: US (occurrence: US)
  Receive Date: 20130620
  Receipt Date: 20130620
  Transmission Date: 20140414
  Serious: No
  Sender: FDA-Public Use
  Company Number: US-009507513-1306USA007867

PATIENT
  Sex: 0

DRUGS (2)
  1. INTRONA [Suspect]
     Indication: MENINGIOMA
     Dosage: 10 MILLION UNITS PER SQUARE METER, EVERY TWO DAYS, 4 WEEKS TREATMENT CYCLE
     Route: 058
  2. DEXAMETHASONE [Concomitant]

REACTIONS (1)
  - Lymphopenia [Unknown]
